FAERS Safety Report 20990688 (Version 1)
Quarter: 2022Q2

REPORT INFORMATION
  Report Type: Spontaneous
  Country: US (occurrence: US)
  Receive Date: 20220622
  Receipt Date: 20220622
  Transmission Date: 20220720
  Serious: Yes (Other)
  Sender: FDA-Public Use
  Company Number: US-CIPLA LTD.-2022US03876

PATIENT

DRUGS (2)
  1. GABAPENTIN [Suspect]
     Active Substance: GABAPENTIN
     Indication: Neuropathy peripheral
     Dosage: UNK
     Route: 065
  2. GABAPENTIN [Suspect]
     Active Substance: GABAPENTIN
     Dosage: 300 MILLIGRAM, TID (2 CAPSULES BY MOUTH)
     Route: 048

REACTIONS (5)
  - Drug ineffective [Unknown]
  - Hyperhidrosis [Unknown]
  - Malaise [Unknown]
  - Product colour issue [Unknown]
  - Tremor [Unknown]
